FAERS Safety Report 4862913-6 (Version None)
Quarter: 2005Q4

REPORT INFORMATION
  Report Type: 
  Country: None (occurrence: None)
  Receive Date: 20051129
  Receipt Date: 20050908
  Transmission Date: 20060501
  Serious: No
  Sender: FDA-Public Use
  Company Number: WAES 0509USA01284

PATIENT
  Age: 70 Year
  Sex: Female
  Weight: 59.8748 kg

DRUGS (3)
  1. ZETIA [Suspect]
     Indication: HYPERCHOLESTEROLAEMIA
     Dosage: 10 MG DAILY PO
     Route: 048
     Dates: start: 20011003
  2. ZETIA [Suspect]
     Dosage: 20 MG PO
     Route: 048
     Dates: start: 20030203, end: 20050907
  3. ZETIA [Suspect]
     Dosage: 40 MG PO
     Route: 048
     Dates: start: 20050908

REACTIONS (2)
  - ABDOMINAL PAIN [None]
  - HYPERCHOLESTEROLAEMIA [None]
